FAERS Safety Report 5466697-2 (Version None)
Quarter: 2007Q3

REPORT INFORMATION
  Report Type: 
  Country: None (occurrence: None)
  Receive Date: 20070920
  Receipt Date: 20070821
  Transmission Date: 20080115
  Serious: Yes (Other)
  Sender: FDA-Public Use
  Company Number: 6037556

PATIENT
  Age: 80 Year
  Sex: Male

DRUGS (5)
  1. RANITIDINE HCL [Suspect]
     Indication: DYSPEPSIA
     Dosage: ORAL
     Route: 048
     Dates: start: 20060101, end: 20070601
  2. ASPIRIN [Concomitant]
  3. ATENOLOL [Concomitant]
  4. RAMIPRIL [Concomitant]
  5. SIMVASTATIN [Concomitant]

REACTIONS (1)
  - SUDDEN ONSET OF SLEEP [None]
